FAERS Safety Report 9689131 (Version 1)
Quarter: 2013Q4

REPORT INFORMATION
  Report Type: Spontaneous
  Country: US (occurrence: US)
  Receive Date: 20131114
  Receipt Date: 20131114
  Transmission Date: 20140711
  Serious: Yes (Hospitalization, Other)
  Sender: FDA-Public Use
  Company Number: US-PFIZER INC-2013324523

PATIENT
  Sex: Female

DRUGS (3)
  1. PRISTIQ [Suspect]
     Dosage: 50 MG, 1X/DAY
     Route: 048
     Dates: end: 20131031
  2. PRISTIQ [Interacting]
     Dosage: 100 MG, 1X/DAY
     Route: 048
     Dates: start: 20131101
  3. TAMOXIFEN CITRATE [Interacting]
     Indication: CANCER HORMONAL THERAPY
     Dosage: 20 MG, 1X/DAY
     Dates: start: 2013

REACTIONS (12)
  - Venous thrombosis limb [Recovered/Resolved]
  - Thrombosis [Recovered/Resolved]
  - Breast cancer [Unknown]
  - Cardiac flutter [Unknown]
  - Therapeutic response unexpected [Unknown]
  - Mood swings [Unknown]
  - Fatigue [Recovered/Resolved]
  - Crying [Recovered/Resolved]
  - Activities of daily living impaired [Recovered/Resolved]
  - Hot flush [Not Recovered/Not Resolved]
  - Emotional disorder [Unknown]
  - Drug interaction [Unknown]
